FAERS Safety Report 16696646 (Version 1)
Quarter: 2019Q4

REPORT INFORMATION
  Report Type: Spontaneous
  Country: US (occurrence: US)
  Receive Date: 20190812
  Receipt Date: 20190812
  Transmission Date: 20200122
  Serious: Yes (Other)
  Sender: FDA-Public Use
  Company Number: None

PATIENT
  Age: 67 Year
  Sex: Female
  Weight: 46.27 kg

DRUGS (1)
  1. BARIUM SWALLOW [Suspect]
     Active Substance: BARIUM SULFATE

REACTIONS (5)
  - Abdominal pain [None]
  - Dyspepsia [None]
  - Dyspnoea [None]
  - Chest discomfort [None]
  - Chest pain [None]

NARRATIVE: CASE EVENT DATE: 20190802
